FAERS Safety Report 24811365 (Version 2)
Quarter: 2025Q3

REPORT INFORMATION
  Report Type: Report from Study
  Country: US (occurrence: US)
  Receive Date: 20250106
  Receipt Date: 20250810
  Transmission Date: 20251020
  Serious: Yes (Hospitalization, Other)
  Sender: ALEXION PHARMACEUTICALS
  Company Number: US-ASTRAZENECA-202501USA001228US

PATIENT
  Sex: Male

DRUGS (6)
  1. OSIMERTINIB [Suspect]
     Active Substance: OSIMERTINIB
     Indication: Lung carcinoma cell type unspecified stage 0
     Route: 065
  2. ONDANSETRON [Concomitant]
     Active Substance: ONDANSETRON
  3. ALBUTEROL [Concomitant]
     Active Substance: ALBUTEROL
  4. BISACODYL [Concomitant]
     Active Substance: BISACODYL
  5. VITAMINS [Concomitant]
     Active Substance: VITAMINS
  6. CETIRIZINE HYDROCHLORIDE [Concomitant]
     Active Substance: CETIRIZINE HYDROCHLORIDE

REACTIONS (14)
  - Immunodeficiency [Not Recovered/Not Resolved]
  - Septic shock [Not Recovered/Not Resolved]
  - Metastases to prostate [Not Recovered/Not Resolved]
  - Blood uric acid increased [Not Recovered/Not Resolved]
  - Emphysema [Not Recovered/Not Resolved]
  - Nephrolithiasis [Not Recovered/Not Resolved]
  - Urinary tract infection [Not Recovered/Not Resolved]
  - Pulmonary fibrosis [Not Recovered/Not Resolved]
  - Chronic obstructive pulmonary disease [Not Recovered/Not Resolved]
  - Pain [Not Recovered/Not Resolved]
  - Insomnia [Not Recovered/Not Resolved]
  - Headache [Not Recovered/Not Resolved]
  - Atelectasis [Not Recovered/Not Resolved]
  - Pyrexia [Not Recovered/Not Resolved]
